FAERS Safety Report 13726439 (Version 1)
Quarter: 2017Q3

REPORT INFORMATION
  Report Type: Spontaneous
  Country: FR (occurrence: FR)
  Receive Date: 20170707
  Receipt Date: 20170707
  Transmission Date: 20171127
  Serious: Yes (Hospitalization)
  Sender: FDA-Public Use
  Company Number: FR-PFIZER INC-2017286786

PATIENT
  Age: 80 Year
  Sex: Female

DRUGS (6)
  1. UROMITEXAN [Suspect]
     Active Substance: MESNA
     Dosage: 400 MG, CYCLIC
     Route: 042
     Dates: start: 20170609, end: 20170610
  2. ENDOXAN /00021101/ [Suspect]
     Active Substance: CYCLOPHOSPHAMIDE
     Dosage: 500 MG, CYCLIC
     Route: 042
     Dates: start: 20170609, end: 20170610
  3. PREDNISONE. [Concomitant]
     Active Substance: PREDNISONE
     Dosage: 60 MG, CYCLIC
     Route: 042
     Dates: start: 20170609, end: 20170616
  4. MABTHERA [Suspect]
     Active Substance: RITUXIMAB
     Dosage: 600 MG, CYCLIC
     Route: 042
     Dates: start: 20170609, end: 20170610
  5. VINCRISTINE SULFATE. [Suspect]
     Active Substance: VINCRISTINE SULFATE
     Dosage: 2 MG, CYCLIC
     Route: 042
     Dates: start: 20170609, end: 20170610
  6. LOVENOX [Concomitant]
     Active Substance: ENOXAPARIN SODIUM

REACTIONS (1)
  - Sinus bradycardia [Recovered/Resolved]

NARRATIVE: CASE EVENT DATE: 20170611
